FAERS Safety Report 12939091 (Version 1)
Quarter: 2016Q4

REPORT INFORMATION
  Report Type: Spontaneous
  Country: US (occurrence: US)
  Receive Date: 20161115
  Receipt Date: 20161115
  Transmission Date: 20170207
  Serious: Yes (Hospitalization, Other)
  Sender: FDA-Public Use
  Company Number: US-ASTELLAS-2016US042917

PATIENT
  Age: 82 Year
  Sex: Male

DRUGS (2)
  1. XTANDI [Suspect]
     Active Substance: ENZALUTAMIDE
     Indication: PROSTATE CANCER
     Route: 065
  2. XTANDI [Suspect]
     Active Substance: ENZALUTAMIDE
     Route: 065

REACTIONS (7)
  - Staphylococcal infection [Unknown]
  - Nausea [Unknown]
  - Abdominal discomfort [Unknown]
  - Somnolence [Unknown]
  - Urethritis [Unknown]
  - Medical device site haemorrhage [Unknown]
  - Full blood count decreased [Unknown]

NARRATIVE: CASE EVENT DATE: 201610
